FAERS Safety Report 21974570 (Version 2)
Quarter: 2023Q1

REPORT INFORMATION
  Report Type: Spontaneous
  Country: US (occurrence: US)
  Receive Date: 20230209
  Receipt Date: 20230302
  Transmission Date: 20230418
  Serious: Yes (Hospitalization)
  Sender: FDA-Public Use
  Company Number: US-TEVA-2023-US-2852631

PATIENT
  Age: 44 Year
  Sex: Male

DRUGS (1)
  1. PREDNISONE [Suspect]
     Active Substance: PREDNISONE
     Indication: Dermatitis contact
     Route: 048

REACTIONS (3)
  - Uveitis [Recovered/Resolved]
  - Eye infection syphilitic [Recovered/Resolved]
  - Retinopathy [Recovered/Resolved]
